FAERS Safety Report 7153184-9 (Version None)
Quarter: 2010Q4

REPORT INFORMATION
  Report Type: 
  Country: None (occurrence: None)
  Receive Date: 20101209
  Receipt Date: 20101209
  Transmission Date: 20110411
  Serious: Yes (Life-Threatening, Disabling)
  Sender: FDA-Public Use
  Company Number: None

PATIENT
  Sex: Male
  Weight: 131.5431 kg

DRUGS (4)
  1. PROPOXYPHENE HCL AND ACETAMINOPHEN [Suspect]
     Indication: BACK PAIN
     Dosage: 1 TABLET 3-T-A DAY; 1 TABLET 2-T A DAY
     Dates: start: 20090804
  2. PROPOXYPHENE HCL AND ACETAMINOPHEN [Suspect]
     Indication: INTERVERTEBRAL DISC PROTRUSION
     Dosage: 1 TABLET 3-T-A DAY; 1 TABLET 2-T A DAY
     Dates: start: 20090804
  3. PROPOXYPHENE HCL AND ACETAMINOPHEN [Suspect]
     Indication: BACK PAIN
     Dosage: 1 TABLET 3-T-A DAY; 1 TABLET 2-T A DAY
     Dates: start: 20101115
  4. PROPOXYPHENE HCL AND ACETAMINOPHEN [Suspect]
     Indication: INTERVERTEBRAL DISC PROTRUSION
     Dosage: 1 TABLET 3-T-A DAY; 1 TABLET 2-T A DAY
     Dates: start: 20101115

REACTIONS (6)
  - BALANCE DISORDER [None]
  - DIZZINESS [None]
  - HEADACHE [None]
  - PAIN [None]
  - PRODUCT QUALITY ISSUE [None]
  - RENAL DISORDER [None]
